FAERS Safety Report 22286374 (Version 2)
Quarter: 2023Q2

REPORT INFORMATION
  Report Type: Spontaneous
  Country: CN (occurrence: CN)
  Receive Date: 20230505
  Receipt Date: 20230511
  Transmission Date: 20230722
  Serious: Yes (Hospitalization)
  Sender: FDA-Public Use
  Company Number: CN-002147023-NVSC2023CN098971

PATIENT
  Age: 36 Year
  Sex: Female
  Weight: 56 kg

DRUGS (1)
  1. CARBAMAZEPINE [Suspect]
     Active Substance: CARBAMAZEPINE
     Indication: Trigeminal neuralgia
     Dosage: 0.2 G, BID
     Route: 048
     Dates: start: 20230402, end: 20230420

REACTIONS (8)
  - Influenza [Unknown]
  - Skin exfoliation [Unknown]
  - Rash [Recovering/Resolving]
  - Pruritus [Unknown]
  - Mouth ulceration [Recovering/Resolving]
  - Lip oedema [Recovering/Resolving]
  - Pyrexia [Unknown]
  - Oedema [Unknown]

NARRATIVE: CASE EVENT DATE: 20230416
